FAERS Safety Report 13314590 (Version 2)
Quarter: 2017Q2

REPORT INFORMATION
  Report Type: Report from Study
  Country: None (occurrence: CA)
  Receive Date: 20170309
  Receipt Date: 20170502
  Transmission Date: 20170830
  Serious: Yes (Other)
  Sender: FDA-Public Use
  Company Number: CA-ABBVIE-17P-028-1899507-00

PATIENT
  Sex: Male

DRUGS (1)
  1. HUMIRA [Suspect]
     Active Substance: ADALIMUMAB
     Indication: CROHN^S DISEASE
     Route: 058
     Dates: start: 20130624, end: 20170410

REACTIONS (4)
  - Skin lesion [Not Recovered/Not Resolved]
  - Hiatus hernia [Unknown]
  - Hernia [Unknown]
  - Crohn^s disease [Not Recovered/Not Resolved]
